FAERS Safety Report 10230877 (Version 2)
Quarter: 2014Q2

REPORT INFORMATION
  Report Type: Spontaneous
  Country: US (occurrence: US)
  Receive Date: 20140611
  Receipt Date: 20140624
  Transmission Date: 20141212
  Serious: Yes (Hospitalization)
  Sender: FDA-Public Use
  Company Number: US-ACTELION-A-NJ2014-099900

PATIENT
  Age: 62 Year
  Sex: Female

DRUGS (8)
  1. OPSUMIT [Suspect]
     Indication: PULMONARY ARTERIAL HYPERTENSION
     Dosage: 10 MG, UNK
     Route: 048
     Dates: start: 20140127
  2. HYDROCODONE/ACETAMINOPHEN [Concomitant]
  3. LEVOTHYROXINE [Concomitant]
  4. ADVAIR [Concomitant]
  5. ASPIRIN [Concomitant]
  6. MAGNESIUM [Concomitant]
  7. CALCIUM [Concomitant]
  8. MULTIVITAMIN [Concomitant]

REACTIONS (5)
  - Pneumonia [Recovered/Resolved]
  - Renal failure acute [Recovered/Resolved]
  - Renal impairment [Recovered/Resolved]
  - Blood sodium increased [Recovered/Resolved]
  - Infection [Recovered/Resolved]
